FAERS Safety Report 4423956-X (Version None)
Quarter: 2004Q3

REPORT INFORMATION
  Report Type: 
  Country: None (occurrence: None)
  Receive Date: 20040809
  Receipt Date: 20040728
  Transmission Date: 20050211
  Serious: Yes (Other)
  Sender: FDA-Public Use
  Company Number: 2004221977FR

PATIENT
  Age: 74 Year
  Sex: Female
  Weight: 55 kg

DRUGS (5)
  1. CELEBREX [Suspect]
     Indication: PAIN IN EXTREMITY
     Dosage: 200 MG, QD, ORAL
     Route: 048
     Dates: start: 20040627, end: 20040101
  2. NISIS (VALSARTAN) [Concomitant]
  3. TANAKAN [Concomitant]
  4. FOSAMAX [Concomitant]
  5. DI-ANTALVIC (DEXTROPROPOXYPHENE HYDROCHLORIDE) [Concomitant]

REACTIONS (3)
  - HAEMATOMA [None]
  - PALPITATIONS [None]
  - SUPRAVENTRICULAR EXTRASYSTOLES [None]
